FAERS Safety Report 9003183 (Version 2)
Quarter: 2013Q3

REPORT INFORMATION
  Report Type: Spontaneous
  Country: DE (occurrence: DE)
  Receive Date: 20130108
  Receipt Date: 20130702
  Transmission Date: 20140515
  Serious: Yes (Other)
  Sender: FDA-Public Use
  Company Number: DE-VERTEX PHARMACEUTICALS INC.-2013-000357

PATIENT
  Age: 67 Year
  Sex: Male
  Weight: 67 kg

DRUGS (5)
  1. INCIVO [Suspect]
     Indication: CHRONIC HEPATITIS C
     Dosage: DOSAGE FORM: TABLET
     Route: 048
     Dates: start: 20111105, end: 20120104
  2. PEGINTERFERON ALFA 2A [Suspect]
     Indication: CHRONIC HEPATITIS C
     Dosage: 135 ?G, QW
     Route: 058
     Dates: start: 20111230, end: 20111230
  3. PEGINTERFERON ALFA 2A [Suspect]
     Dosage: 180 ?G, QW
     Route: 058
     Dates: start: 20111105, end: 20111229
  4. RIBAVIRIN [Suspect]
     Indication: CHRONIC HEPATITIS C
     Dosage: DOSAGE FORM: UNKNOWN
     Route: 048
     Dates: start: 20111222, end: 20120105
  5. RIBAVIRIN [Suspect]
     Dosage: DOSAGE FORM: UNKNOWN
     Route: 048
     Dates: start: 20111105, end: 20111221

REACTIONS (1)
  - Rash [Recovered/Resolved]
